FAERS Safety Report 7273882-6 (Version None)
Quarter: 2011Q1

REPORT INFORMATION
  Report Type: 
  Country: None (occurrence: None)
  Receive Date: 20110128
  Receipt Date: 20110121
  Transmission Date: 20110831
  Serious: Yes (Death)
  Sender: FDA-Public Use
  Company Number: TCI2011A00344

PATIENT
  Age: 9 Decade
  Sex: Male

DRUGS (2)
  1. ANTITHROMBOTIC AGENTS [Concomitant]
  2. LANSOPRAZOLE [Suspect]
     Dosage: PER ORAL
     Route: 048

REACTIONS (4)
  - PNEUMONIA ASPIRATION [None]
  - DEPRESSED LEVEL OF CONSCIOUSNESS [None]
  - BLOOD PRESSURE DECREASED [None]
  - COLITIS COLLAGENOUS [None]
